FAERS Safety Report 25120217 (Version 1)
Quarter: 2025Q1

REPORT INFORMATION
  Report Type: Spontaneous
  Country: NO (occurrence: NO)
  Receive Date: 20250325
  Receipt Date: 20250325
  Transmission Date: 20250408
  Serious: Yes (Other)
  Sender: ELI LILLY AND COMPANY
  Company Number: NO-ELI_LILLY_AND_COMPANY-NO202503013567

PATIENT
  Age: 25 Year
  Sex: Female
  Weight: 77 kg

DRUGS (2)
  1. FLUOXETINE HYDROCHLORIDE [Suspect]
     Active Substance: FLUOXETINE HYDROCHLORIDE
     Indication: Depression
     Route: 065
     Dates: start: 202306
  2. FLUOXETINE HYDROCHLORIDE [Suspect]
     Active Substance: FLUOXETINE HYDROCHLORIDE
     Indication: Eating disorder

REACTIONS (2)
  - Osteoporotic fracture [Unknown]
  - Osteoporosis [Not Recovered/Not Resolved]
